FAERS Safety Report 9425867 (Version 1)
Quarter: 2013Q3

REPORT INFORMATION
  Report Type: Spontaneous
  Country: US (occurrence: US)
  Receive Date: 20130729
  Receipt Date: 20130729
  Transmission Date: 20140515
  Serious: No
  Sender: FDA-Public Use
  Company Number: US-009507513-1307USA014988

PATIENT
  Sex: Male

DRUGS (2)
  1. VYTORIN [Suspect]
     Dosage: 10/40 MG FREQUENCY UNKNOWN
     Route: 048
  2. AMLODIPINE [Concomitant]

REACTIONS (1)
  - Muscle spasms [Unknown]
